FAERS Safety Report 9046924 (Version 2)
Quarter: 2013Q2

REPORT INFORMATION
  Report Type: Spontaneous
  Country: IT (occurrence: IT)
  Receive Date: 20130204
  Receipt Date: 20130516
  Transmission Date: 20140414
  Serious: Yes (Hospitalization, Disabling)
  Sender: FDA-Public Use
  Company Number: IT-BAYER-2013-011364

PATIENT
  Sex: Female

DRUGS (1)
  1. YASMIN [Suspect]
     Dosage: UNK
     Dates: start: 2011

REACTIONS (5)
  - Grand mal convulsion [None]
  - Mental impairment [None]
  - Speech disorder [None]
  - Loss of consciousness [None]
  - Tongue biting [None]
